FAERS Safety Report 8896090 (Version 1)
Quarter: 2012Q4

REPORT INFORMATION
  Report Type: Report from Study
  Country: KR (occurrence: KR)
  Receive Date: 20121108
  Receipt Date: 20121108
  Transmission Date: 20130627
  Serious: Yes (Hospitalization)
  Sender: FDA-Public Use
  Company Number: KR-BAYER-2012-115616

PATIENT
  Age: 65 Year
  Sex: Male

DRUGS (2)
  1. NEXAVAR [Suspect]
     Indication: CARCINOMA HEPATOCELLULAR
     Dosage: 2T, BID
     Route: 048
     Dates: start: 20120820, end: 20120902
  2. NEXAVAR [Suspect]
     Indication: CARCINOMA HEPATOCELLULAR
     Dosage: 2T, QD
     Route: 048
     Dates: start: 20120910, end: 20121026

REACTIONS (2)
  - Nephritis [None]
  - Palmar-plantar erythrodysaesthesia syndrome [Recovering/Resolving]
